FAERS Safety Report 10510452 (Version 1)
Quarter: 2014Q4

REPORT INFORMATION
  Report Type: Spontaneous
  Country: US (occurrence: None)
  Receive Date: 20141009
  Receipt Date: 20141009
  Transmission Date: 20150528
  Serious: Yes (Hospitalization, Other)
  Sender: FDA-Public Use
  Company Number: None

PATIENT
  Age: 33 Year
  Sex: Female
  Weight: 54.43 kg

DRUGS (1)
  1. RISPERDAL [Suspect]
     Active Substance: RISPERIDONE
     Indication: DEPRESSION
     Dosage: 1 PILL THREE TIMES DAILY TAKEN BY MOUTH
     Route: 048
     Dates: start: 20101220, end: 20110828

REACTIONS (5)
  - Myalgia [None]
  - Confusional state [None]
  - Gait disturbance [None]
  - Catatonia [None]
  - Cognitive disorder [None]

NARRATIVE: CASE EVENT DATE: 20110828
